FAERS Safety Report 8840072 (Version 1)
Quarter: 2012Q4

REPORT INFORMATION
  Report Type: 
  Country: US (occurrence: US)
  Receive Date: 20121015
  Receipt Date: 20121015
  Transmission Date: 20130627
  Serious: No
  Sender: FDA-Public Use
  Company Number: US-B.I. PHARMACEUTICALS,INC./RIDGEFIELD-2012-BP-24740BP

PATIENT
  Sex: Male
  Weight: 91 kg

DRUGS (10)
  1. PRADAXA [Suspect]
     Indication: ATRIAL FIBRILLATION
     Dosage: 300 mg
     Route: 048
     Dates: start: 201012
  2. SIMVASTATIN [Concomitant]
     Indication: BLOOD CHOLESTEROL INCREASED
     Dosage: 20 mg
     Route: 048
  3. POTASSIUM CHLORIDE ER [Concomitant]
     Indication: ATRIAL FLUTTER
     Dosage: 20 mEq
     Route: 048
  4. ASPIRIN [Concomitant]
     Indication: CARDIAC DISORDER
     Dosage: 81 mg
     Route: 048
  5. ASPIRIN [Concomitant]
     Indication: SCINTILLATING SCOTOMA
  6. LOTREL [Concomitant]
     Indication: HYPERTENSION
     Route: 048
  7. VALACYCLOVIR [Concomitant]
     Indication: HERPES SIMPLEX
     Dosage: 500 mg
     Route: 048
  8. ALLOPURINOL [Concomitant]
     Indication: GOUT
     Dosage: 200 mg
     Route: 048
  9. MAG TAB SR [Concomitant]
     Indication: ATRIAL FLUTTER
     Dosage: 84 mg
     Route: 048
  10. TESTIM GEL 1% [Concomitant]
     Indication: BLOOD TESTOSTERONE ABNORMAL
     Route: 061

REACTIONS (1)
  - Atrial fibrillation [Recovered/Resolved]
